FAERS Safety Report 12219805 (Version 1)
Quarter: 2016Q1

REPORT INFORMATION
  Report Type: Spontaneous
  Country: US (occurrence: US)
  Receive Date: 20160330
  Receipt Date: 20160330
  Transmission Date: 20160526
  Serious: Yes (Hospitalization, Other)
  Sender: FDA-Public Use
  Company Number: US-BRISTOL-MYERS SQUIBB COMPANY-BMS-2016-020502

PATIENT
  Sex: Male
  Weight: 120 kg

DRUGS (3)
  1. COUMADINE [Suspect]
     Active Substance: WARFARIN SODIUM
     Indication: PRODUCT USED FOR UNKNOWN INDICATION
     Route: 065
  2. REGRANEX [Suspect]
     Active Substance: BECAPLERMIN
     Dosage: UNK, QD
     Route: 061
  3. REGRANEX [Suspect]
     Active Substance: BECAPLERMIN
     Indication: WOUND
     Dosage: UNK, QD
     Route: 061

REACTIONS (4)
  - Bunion operation [Unknown]
  - Anticoagulation drug level abnormal [Unknown]
  - Infected bunion [Unknown]
  - Osteomyelitis [Unknown]
